FAERS Safety Report 8464065-2 (Version None)
Quarter: 2012Q2

REPORT INFORMATION
  Report Type: 
  Country: None (occurrence: None)
  Receive Date: 20120625
  Receipt Date: 20120618
  Transmission Date: 20120825
  Serious: Yes (Hospitalization)
  Sender: FDA-Public Use
  Company Number: US-ROCHE-1016028

PATIENT
  Age: 63 Year
  Sex: Male
  Weight: 90.04 kg

DRUGS (3)
  1. AVASTIN [Suspect]
     Indication: METASTATIC NEOPLASM
     Dosage: OVER 30-90 MIN, DAY 1. LAST DOSE 30/11/2011, TOTAL DOSE GIVEN THIS COURSE 1485MG
     Route: 042
     Dates: start: 20110707
  2. DOCETAXEL [Suspect]
     Indication: METASTATIC NEOPLASM
     Dosage: OVER 1 HR, DAY 1
     Route: 042
     Dates: start: 20110707, end: 20111101
  3. CISPLATIN [Suspect]
     Indication: METASTATIC NEOPLASM
     Dosage: OVER 1-2 HRS, DAY 1
     Route: 042
     Dates: start: 20110707, end: 20111101

REACTIONS (15)
  - RENAL FAILURE ACUTE [None]
  - VOMITING [None]
  - ANAEMIA [None]
  - HYPOCALCAEMIA [None]
  - HYPOKALAEMIA [None]
  - FATIGUE [None]
  - ABDOMINAL PAIN [None]
  - WHITE BLOOD CELL COUNT DECREASED [None]
  - HYPERTENSION [None]
  - BLOOD CREATININE INCREASED [None]
  - PAIN [None]
  - DEHYDRATION [None]
  - HYPOALBUMINAEMIA [None]
  - NAUSEA [None]
  - BLOOD CHLORIDE DECREASED [None]
